FAERS Safety Report 4410657-7 (Version None)
Quarter: 2004Q3

REPORT INFORMATION
  Report Type: 
  Country: None (occurrence: None)
  Receive Date: 20040729
  Receipt Date: 20040123
  Transmission Date: 20050211
  Serious: Yes (Hospitalization, Other)
  Sender: FDA-Public Use
  Company Number: 200410180JP

PATIENT
  Age: 60 Year
  Sex: Female
  Weight: 48 kg

DRUGS (8)
  1. ARAVA [Suspect]
     Indication: RHEUMATOID ARTHRITIS
     Route: 048
     Dates: start: 20040109, end: 20040120
  2. MUCOSTA [Concomitant]
     Indication: GASTRITIS
     Route: 048
  3. ERYTHROCIN [Concomitant]
     Indication: BRONCHITIS CHRONIC
     Route: 048
  4. PREDONINE [Concomitant]
     Route: 048
  5. ALFAROL [Concomitant]
     Route: 048
  6. ZANTAC [Concomitant]
     Route: 048
  7. MYSLEE [Concomitant]
     Route: 048
  8. DEPAS [Concomitant]
     Route: 048

REACTIONS (6)
  - ALANINE AMINOTRANSFERASE INCREASED [None]
  - ASPARTATE AMINOTRANSFERASE INCREASED [None]
  - BLOOD LACTATE DEHYDROGENASE INCREASED [None]
  - DRUG ERUPTION [None]
  - PYREXIA [None]
  - STEVENS-JOHNSON SYNDROME [None]
